FAERS Safety Report 11304025 (Version 1)
Quarter: 2015Q3

REPORT INFORMATION
  Report Type: Spontaneous
  Country: US (occurrence: US)
  Receive Date: 20150723
  Receipt Date: 20150723
  Transmission Date: 20151125
  Serious: No
  Sender: FDA-Public Use
  Company Number: US-JNJFOC-20141214179

PATIENT
  Age: 45 Year
  Sex: Male
  Weight: 83.92 kg

DRUGS (4)
  1. PEPCID AC [Suspect]
     Active Substance: FAMOTIDINE
     Indication: DYSPEPSIA
     Route: 048
  2. PEPCID AC [Suspect]
     Active Substance: FAMOTIDINE
     Indication: GASTROOESOPHAGEAL REFLUX DISEASE
     Route: 048
  3. PEPCID AC [Suspect]
     Active Substance: FAMOTIDINE
     Indication: DYSPEPSIA
     Route: 048
  4. PEPCID AC [Suspect]
     Active Substance: FAMOTIDINE
     Indication: GASTROOESOPHAGEAL REFLUX DISEASE
     Route: 048

REACTIONS (3)
  - Drug ineffective [Unknown]
  - Condition aggravated [Recovered/Resolved]
  - Wrong technique in product usage process [Unknown]
